FAERS Safety Report 16327785 (Version 1)
Quarter: 2019Q2

REPORT INFORMATION
  Report Type: Spontaneous
  Country: DK (occurrence: DK)
  Receive Date: 20190517
  Receipt Date: 20190517
  Transmission Date: 20190711
  Serious: Yes (Other)
  Sender: FDA-Public Use
  Company Number: DK-TEVA-2018-DK-983675

PATIENT
  Age: 46 Year
  Sex: Female
  Weight: 95 kg

DRUGS (2)
  1. SERTRALINE [Concomitant]
     Active Substance: SERTRALINE HYDROCHLORIDE
     Indication: ANXIETY
     Dosage: STRENGTH: 50 MG
     Route: 048
     Dates: start: 201602, end: 201603
  2. OXABENZ [Suspect]
     Active Substance: OXAZEPAM
     Indication: RESTLESSNESS
     Dosage: 45 MILLIGRAM DAILY; STRENGTH: 15 MG
     Route: 048
     Dates: start: 20140801, end: 20180605

REACTIONS (22)
  - Hot flush [Not Recovered/Not Resolved]
  - Tooth loss [Unknown]
  - Glossodynia [Not Recovered/Not Resolved]
  - Dizziness [Unknown]
  - Rash [Not Recovered/Not Resolved]
  - Dry mouth [Unknown]
  - Skin burning sensation [Unknown]
  - Arthralgia [Not Recovered/Not Resolved]
  - Hypovitaminosis [Unknown]
  - Visual impairment [Unknown]
  - Myalgia [Not Recovered/Not Resolved]
  - Toothache [Not Recovered/Not Resolved]
  - Restlessness [Unknown]
  - Muscle tightness [Unknown]
  - Anxiety [Unknown]
  - Headache [Unknown]
  - Suicidal ideation [Unknown]
  - Heart rate increased [Unknown]
  - Palpitations [Not Recovered/Not Resolved]
  - Gingival discomfort [Unknown]
  - Pain in jaw [Not Recovered/Not Resolved]
  - Drug withdrawal syndrome [Unknown]

NARRATIVE: CASE EVENT DATE: 20150301
